FAERS Safety Report 15375671 (Version 1)
Quarter: 2018Q3

REPORT INFORMATION
  Report Type: Spontaneous
  Country: FR (occurrence: FR)
  Receive Date: 20180912
  Receipt Date: 20180912
  Transmission Date: 20181010
  Serious: Yes (Hospitalization)
  Sender: FDA-Public Use
  Company Number: FR-MYLANLABS-2018M1066509

PATIENT
  Age: 68 Year
  Sex: Female
  Weight: 58 kg

DRUGS (5)
  1. CYTARABINE. [Suspect]
     Active Substance: CYTARABINE
     Indication: MANTLE CELL LYMPHOMA STAGE IV
     Dosage: 200 MG/M2, QD
     Route: 041
     Dates: start: 20151118, end: 20151121
  2. OXALIPLATIN. [Suspect]
     Active Substance: OXALIPLATIN
     Indication: MANTLE CELL LYMPHOMA STAGE IV
     Dosage: 130 MG/M2, CYCLE
     Route: 041
     Dates: start: 20150722, end: 20150929
  3. ETOPOSIDE. [Suspect]
     Active Substance: ETOPOSIDE
     Indication: MANTLE CELL LYMPHOMA STAGE IV
     Dosage: 200 MG/M2, QD
     Route: 041
     Dates: start: 20151118, end: 20151121
  4. BICNU [Suspect]
     Active Substance: CARMUSTINE
     Indication: MANTLE CELL LYMPHOMA STAGE IV
     Dosage: 300 MG/M2, TOTAL
     Route: 041
     Dates: start: 20151117, end: 20151117
  5. ALKERAN [Suspect]
     Active Substance: MELPHALAN
     Indication: MANTLE CELL LYMPHOMA STAGE IV
     Dosage: 140 MG/M2, TOTAL
     Route: 041
     Dates: start: 20151122, end: 20151122

REACTIONS (1)
  - Venoocclusive liver disease [Recovered/Resolved]

NARRATIVE: CASE EVENT DATE: 20151204
